FAERS Safety Report 5775997-8 (Version None)
Quarter: 2008Q2

REPORT INFORMATION
  Report Type: 
  Country: None (occurrence: None)
  Receive Date: 20080613
  Receipt Date: 20080602
  Transmission Date: 20081010
  Serious: Yes (Hospitalization)
  Sender: FDA-Public Use
  Company Number: ADE# 08-082

PATIENT
  Sex: Male
  Weight: 70.3075 kg

DRUGS (4)
  1. METOPROLOL TARTRATE [Suspect]
     Indication: HYPERTENSION
     Dosage: 1 TABLET TWICE DAILY
     Dates: start: 20071201, end: 20080201
  2. ZOCOR [Concomitant]
  3. NIASPAN [Concomitant]
  4. IMDUR [Concomitant]

REACTIONS (2)
  - HEART RATE DECREASED [None]
  - THERAPEUTIC RESPONSE UNEXPECTED WITH DRUG SUBSTITUTION [None]
